FAERS Safety Report 15434283 (Version 1)
Quarter: 2018Q3

REPORT INFORMATION
  Report Type: Spontaneous
  Country: MX (occurrence: MX)
  Receive Date: 20180927
  Receipt Date: 20180927
  Transmission Date: 20181010
  Serious: Yes (Other)
  Sender: FDA-Public Use
  Company Number: PHHY2018MX103202

PATIENT

DRUGS (1)
  1. BETAMETHASONE. [Suspect]
     Active Substance: BETAMETHASONE
     Indication: DERMATITIS ACNEIFORM
     Route: 061

REACTIONS (7)
  - Intentional product misuse [Unknown]
  - Acne [Unknown]
  - Seborrhoea [Unknown]
  - Dermatitis acneiform [Unknown]
  - Erythema [Unknown]
  - Oedema [Unknown]
  - Rash pustular [Unknown]
